FAERS Safety Report 25074643 (Version 2)
Quarter: 2025Q1

REPORT INFORMATION
  Report Type: Spontaneous
  Country: DK (occurrence: DK)
  Receive Date: 20250313
  Receipt Date: 20250327
  Transmission Date: 20250408
  Serious: Yes (Hospitalization, Other)
  Sender: TEVA
  Company Number: DK-TEVA-VS-3307153

PATIENT
  Age: 30 Year
  Sex: Male

DRUGS (5)
  1. ARIPIPRAZOLE [Suspect]
     Active Substance: ARIPIPRAZOLE
     Indication: Schizophrenia
     Route: 065
  2. OLANZAPINE [Suspect]
     Active Substance: OLANZAPINE
     Indication: Schizophrenia
     Route: 065
  3. ZUCLOPENTHIXOL [Suspect]
     Active Substance: ZUCLOPENTHIXOL
     Indication: Schizophrenia
     Route: 065
  4. RISPERIDONE [Suspect]
     Active Substance: RISPERIDONE
     Indication: Schizophrenia
     Route: 065
  5. SERTINDOLE [Suspect]
     Active Substance: SERTINDOLE
     Indication: Schizophrenia
     Route: 065

REACTIONS (7)
  - Weight increased [Unknown]
  - Akathisia [Unknown]
  - Hyperprolactinaemia [Unknown]
  - Apathy [Unknown]
  - Somnolence [Unknown]
  - Sexual dysfunction [Unknown]
  - Drug ineffective [Unknown]
